FAERS Safety Report 5147030-2 (Version None)
Quarter: 2006Q4

REPORT INFORMATION
  Report Type: 
  Country: None (occurrence: None)
  Receive Date: 20061109
  Receipt Date: 20061027
  Transmission Date: 20070319
  Serious: Yes (Other)
  Sender: FDA-Public Use
  Company Number: US-ELI_LILLY_AND_COMPANY-US200610005206

PATIENT
  Age: 36 Year
  Sex: Female

DRUGS (5)
  1. STRATTERA [Suspect]
     Indication: ATTENTION DEFICIT/HYPERACTIVITY DISORDER
     Dosage: 30 MG, DAILY (1/D)
     Dates: start: 20060101, end: 20060101
  2. STRATTERA [Suspect]
     Dosage: 60 MG, DAILY (1/D)
     Dates: start: 20060101
  3. ADDERALL 10 [Concomitant]
  4. SYNTHROID [Concomitant]
  5. LEXAPRO                                 /USA/ [Concomitant]

REACTIONS (3)
  - ALANINE AMINOTRANSFERASE INCREASED [None]
  - ASPARTATE AMINOTRANSFERASE INCREASED [None]
  - BLOOD ALKALINE PHOSPHATASE INCREASED [None]
